FAERS Safety Report 15528214 (Version 2)
Quarter: 2018Q4

REPORT INFORMATION
  Report Type: Spontaneous
  Country: US (occurrence: US)
  Receive Date: 20181020
  Receipt Date: 20181202
  Transmission Date: 20190205
  Serious: No
  Sender: FDA-Public Use
  Company Number: US-JNJFOC-20181011550

PATIENT
  Sex: Male

DRUGS (13)
  1. SUDAFED 12 HOUR [Suspect]
     Active Substance: PSEUDOEPHEDRINE HYDROCHLORIDE
     Indication: NASAL CONGESTION
     Dosage: 8 AM AND 8 PM (ONE IN THE MORNING AND ONE AT NIGHT)
     Route: 048
  2. CHLORPHENIRAMINE MALEATE. [Concomitant]
     Active Substance: CHLORPHENIRAMINE MALEATE
     Indication: PRODUCT USED FOR UNKNOWN INDICATION
     Dosage: 8 AM, 4 PM, 8 PM
     Route: 065
  3. CLONAZEPAM. [Concomitant]
     Active Substance: CLONAZEPAM
     Indication: PRODUCT USED FOR UNKNOWN INDICATION
     Route: 065
  4. SUDAFED 12 HOUR [Suspect]
     Active Substance: PSEUDOEPHEDRINE HYDROCHLORIDE
     Indication: SINUS CONGESTION
     Dosage: 8 AM AND 8 PM (ONE IN THE MORNING AND ONE AT NIGHT)
     Route: 048
  5. SUDAFED 12 HOUR [Suspect]
     Active Substance: PSEUDOEPHEDRINE HYDROCHLORIDE
     Indication: DIZZINESS
     Dosage: 8 AM AND 8 PM (ONE IN THE MORNING AND ONE AT NIGHT)
     Route: 048
  6. SUDAFED 12 HOUR [Suspect]
     Active Substance: PSEUDOEPHEDRINE HYDROCHLORIDE
     Indication: NAUSEA
     Dosage: 8 AM AND 8 PM (ONE IN THE MORNING AND ONE AT NIGHT)
     Route: 048
  7. SUDAFED 12 HOUR [Suspect]
     Active Substance: PSEUDOEPHEDRINE HYDROCHLORIDE
     Indication: HYPERHIDROSIS
     Dosage: 8 AM AND 8 PM (ONE IN THE MORNING AND ONE AT NIGHT)
     Route: 048
  8. SUDAFED 12 HOUR [Suspect]
     Active Substance: PSEUDOEPHEDRINE HYDROCHLORIDE
     Indication: CHRONIC SINUSITIS
     Dosage: 8 AM AND 8 PM (ONE IN THE MORNING AND ONE AT NIGHT)
     Route: 048
  9. SUDAFED 12 HOUR [Suspect]
     Active Substance: PSEUDOEPHEDRINE HYDROCHLORIDE
     Indication: VERTIGO
     Dosage: 8 AM AND 8 PM (ONE IN THE MORNING AND ONE AT NIGHT)
     Route: 048
  10. SIMVASTATIN. [Concomitant]
     Active Substance: SIMVASTATIN
     Indication: PRODUCT USED FOR UNKNOWN INDICATION
     Route: 065
  11. SUDAFED 12 HOUR [Suspect]
     Active Substance: PSEUDOEPHEDRINE HYDROCHLORIDE
     Indication: FEELING ABNORMAL
     Dosage: 8 AM AND 8 PM (ONE IN THE MORNING AND ONE AT NIGHT)
     Route: 048
  12. EFFEXOR [Concomitant]
     Active Substance: VENLAFAXINE HYDROCHLORIDE
     Indication: PRODUCT USED FOR UNKNOWN INDICATION
     Route: 065
  13. FLUTICASONE. [Concomitant]
     Active Substance: FLUTICASONE
     Indication: PRODUCT USED FOR UNKNOWN INDICATION
     Route: 045

REACTIONS (6)
  - Product use in unapproved indication [Unknown]
  - Product administration error [Unknown]
  - Therapeutic response unexpected [Unknown]
  - Vertigo [Unknown]
  - Ear discomfort [Unknown]
  - Sinus congestion [Unknown]
